FAERS Safety Report 11403672 (Version 2)
Quarter: 2016Q3

REPORT INFORMATION
  Report Type: Spontaneous
  Country: US (occurrence: US)
  Receive Date: 20150821
  Receipt Date: 20160822
  Transmission Date: 20161109
  Serious: No
  Sender: FDA-Public Use
  Company Number: US-TEVA-580794USA

PATIENT
  Sex: Female

DRUGS (2)
  1. PAROXETINE. [Suspect]
     Active Substance: PAROXETINE
     Dosage: 10 MILLIGRAM DAILY;
  2. PAROXETINE. [Suspect]
     Active Substance: PAROXETINE
     Dosage: 10 MILLIGRAM DAILY;

REACTIONS (3)
  - Rash generalised [Not Recovered/Not Resolved]
  - Skin reaction [Not Recovered/Not Resolved]
  - Generalised erythema [Not Recovered/Not Resolved]
